FAERS Safety Report 6965707-0 (Version None)
Quarter: 2010Q3

REPORT INFORMATION
  Report Type: 
  Country: None (occurrence: None)
  Receive Date: 20100903
  Receipt Date: 20100825
  Transmission Date: 20110219
  Serious: Yes (Hospitalization, Other)
  Sender: FDA-Public Use
  Company Number: NL-ROCHE-723706

PATIENT
  Sex: Female

DRUGS (2)
  1. AVASTIN [Suspect]
     Indication: COLON CANCER
     Route: 042
  2. XELODA [Suspect]
     Indication: COLON CANCER
     Route: 048

REACTIONS (3)
  - ABDOMINAL INFECTION [None]
  - OPEN WOUND [None]
  - RECTAL PERFORATION [None]
